FAERS Safety Report 10136248 (Version 3)
Quarter: 2014Q2

REPORT INFORMATION
  Report Type: Spontaneous
  Country: ES (occurrence: ES)
  Receive Date: 20140429
  Receipt Date: 20140529
  Transmission Date: 20141212
  Serious: Yes (Life-Threatening, Other)
  Sender: FDA-Public Use
  Company Number: ES-ROCHE-1386021

PATIENT
  Age: 53 Year
  Sex: Female
  Weight: 59.5 kg

DRUGS (11)
  1. PERTUZUMAB [Suspect]
     Indication: HER-2 POSITIVE BREAST CANCER
     Route: 042
     Dates: start: 20140409
  2. TRASTUZUMAB [Suspect]
     Indication: HER-2 POSITIVE BREAST CANCER
     Route: 042
     Dates: start: 20140409
  3. DOCETAXEL [Suspect]
     Indication: HER-2 POSITIVE BREAST CANCER
     Route: 042
     Dates: start: 20140409, end: 20140505
  4. DEXAMETHASONE [Concomitant]
     Route: 042
     Dates: start: 20140409, end: 20140409
  5. DEXAMETHASONE [Concomitant]
     Route: 048
     Dates: start: 20140409, end: 20140411
  6. RANITIDINE [Concomitant]
     Route: 042
     Dates: start: 20140409, end: 20140409
  7. RANITIDINE [Concomitant]
     Route: 048
     Dates: start: 20140409, end: 20140411
  8. DEXCLORFENIRAMINA [Concomitant]
     Route: 042
     Dates: start: 20140409, end: 20140409
  9. PALONOSETRON [Concomitant]
     Route: 042
     Dates: start: 20140409, end: 20140409
  10. EPIRUBICIN [Concomitant]
     Route: 065
     Dates: start: 20140213, end: 20140327
  11. CYCLOPHOSPHAMIDE [Concomitant]
     Route: 065
     Dates: start: 20140213, end: 20140327

REACTIONS (2)
  - Interstitial lung disease [Recovered/Resolved]
  - Neutropenia [Recovered/Resolved]
